FAERS Safety Report 4836720-4 (Version None)
Quarter: 2005Q4

REPORT INFORMATION
  Report Type: 
  Country: None (occurrence: None)
  Receive Date: 20051123
  Receipt Date: 20051108
  Transmission Date: 20060501
  Serious: Yes (Other)
  Sender: FDA-Public Use
  Company Number: PT-ABBOTT-05P-130-0317028-00

PATIENT
  Sex: Female

DRUGS (4)
  1. HUMIRA [Suspect]
     Indication: RHEUMATOID ARTHRITIS
     Route: 058
     Dates: start: 20051013, end: 20051027
  2. DILAMAX DISKUS [Concomitant]
     Indication: ASTHMA
  3. LEDERTREXATO [Concomitant]
     Indication: RHEUMATOID ARTHRITIS
     Route: 048
     Dates: start: 20021019
  4. RISEDRONATE SODIUM [Concomitant]
     Indication: OSTEOPOROSIS
     Route: 048

REACTIONS (5)
  - CONJUNCTIVAL HYPERAEMIA [None]
  - CONJUNCTIVAL OEDEMA [None]
  - EYELID OEDEMA [None]
  - FACE OEDEMA [None]
  - URTICARIA [None]
